FAERS Safety Report 23616144 (Version 1)
Quarter: 2024Q1

REPORT INFORMATION
  Report Type: Spontaneous
  Country: US (occurrence: None)
  Receive Date: 20240309
  Receipt Date: 20240309
  Transmission Date: 20240409
  Serious: Yes (Hospitalization)
  Sender: FDA-Public Use
  Company Number: None

PATIENT
  Age: 76 Year
  Sex: Male
  Weight: 66.2 kg

DRUGS (3)
  1. FLUOROURACIL [Suspect]
     Active Substance: FLUOROURACIL
     Dates: end: 20211126
  2. IRINOTECAN SUCROSOFATE [Suspect]
     Active Substance: IRINOTECAN SUCROSOFATE
     Dates: end: 20211126
  3. LEUCOVORIN CALCIUM [Suspect]
     Active Substance: LEUCOVORIN CALCIUM
     Dates: end: 20211126

REACTIONS (9)
  - Anaemia [None]
  - Blood creatinine decreased [None]
  - Depression [None]
  - Oral candidiasis [None]
  - Decreased appetite [None]
  - Pain [None]
  - Dehydration [None]
  - Fatigue [None]
  - Hospice care [None]

NARRATIVE: CASE EVENT DATE: 20211216
